FAERS Safety Report 6610165-9 (Version None)
Quarter: 2010Q1

REPORT INFORMATION
  Report Type: 
  Country: None (occurrence: None)
  Receive Date: 20100302
  Receipt Date: 20100224
  Transmission Date: 20100710
  Serious: Yes (Death)
  Sender: FDA-Public Use
  Company Number: CA-BAYER-200943796NA

PATIENT
  Age: 66 Year
  Sex: Female

DRUGS (7)
  1. SORAFENIB [Suspect]
     Indication: CHOROID MELANOMA
     Dosage: TOTAL DAILY DOSE: 400 MG  UNIT DOSE: 200 MG
     Route: 048
     Dates: start: 20090831, end: 20090927
  2. MICARDIS [Concomitant]
     Indication: HYPERTENSION
     Dosage: TOTAL DAILY DOSE: 40 MG  UNIT DOSE: 40 MG
  3. ACTONEL [Concomitant]
     Indication: OSTEOPOROSIS
     Dosage: UNIT DOSE: 35 MG
  4. CALCIUM [Concomitant]
     Indication: LACTOSE INTOLERANCE
     Dosage: TOTAL DAILY DOSE: 1050 MG  UNIT DOSE: 350 MG
  5. VITAMIN D [Concomitant]
     Indication: LACTOSE INTOLERANCE
     Dosage: TOTAL DAILY DOSE: 800 IU  UNIT DOSE: 400 IU
  6. ASPIRIN [Concomitant]
     Dosage: TOTAL DAILY DOSE: 81 MG  UNIT DOSE: 81 MG
  7. RABEPRAZOLE SODIUM [Concomitant]
     Dosage: TOTAL DAILY DOSE: 20 MG  UNIT DOSE: 20 MG

REACTIONS (1)
  - DEATH [None]
